FAERS Safety Report 12784467 (Version 7)
Quarter: 2017Q1

REPORT INFORMATION
  Report Type: Spontaneous
  Country: US (occurrence: US)
  Receive Date: 20160927
  Receipt Date: 20170330
  Transmission Date: 20170428
  Serious: Yes (Hospitalization, Other)
  Sender: FDA-Public Use
  Company Number: US-SAOL THERAPEUTICS-2016SAO00696

PATIENT
  Age: 28 Year
  Sex: Female

DRUGS (6)
  1. LIORESAL [Suspect]
     Active Substance: BACLOFEN
     Indication: MUSCLE SPASTICITY
     Dosage: 600 ?G, \DAY
  2. BACLOFEN. [Suspect]
     Active Substance: BACLOFEN
     Indication: HEREDITARY SPASTIC PARAPLEGIA
     Dosage: 145 ?G, \DAY
     Route: 037
  3. PROZAC [Concomitant]
     Active Substance: FLUOXETINE HYDROCHLORIDE
  4. BACLOFEN. [Suspect]
     Active Substance: BACLOFEN
     Indication: MUSCLE SPASTICITY
     Dosage: 110 ?G, \DAY
  5. LAMICTAL [Concomitant]
     Active Substance: LAMOTRIGINE
  6. BACLOFEN. [Suspect]
     Active Substance: BACLOFEN
     Dosage: 200 ?G, \DAY
     Route: 037

REACTIONS (10)
  - Therapy non-responder [Unknown]
  - Device dislocation [Recovered/Resolved]
  - Complication associated with device [Unknown]
  - Pain [Unknown]
  - Syncope [Unknown]
  - Muscle spasticity [Unknown]
  - Clonus [Unknown]
  - Arthralgia [Unknown]
  - Back pain [Unknown]
  - Presyncope [Unknown]

NARRATIVE: CASE EVENT DATE: 2016
